FAERS Safety Report 17876814 (Version 1)
Quarter: 2020Q2

REPORT INFORMATION
  Report Type: Spontaneous
  Country: US (occurrence: US)
  Receive Date: 20200609
  Receipt Date: 20200609
  Transmission Date: 20200714
  Serious: No
  Sender: FDA-Public Use
  Company Number: US-SA-2020SA146216

PATIENT

DRUGS (1)
  1. ALLEGRA [Suspect]
     Active Substance: FEXOFENADINE HYDROCHLORIDE
     Dosage: 5 ML GIVEN BY PATIENT FATHER AND 30 MIN LATER 5 ML BY FATHER
     Route: 065

REACTIONS (1)
  - Extra dose administered [Unknown]
